FAERS Safety Report 4936692-8 (Version None)
Quarter: 2006Q1

REPORT INFORMATION
  Report Type: 
  Country: None (occurrence: None)
  Receive Date: 20060302
  Receipt Date: 20060216
  Transmission Date: 20060701
  Serious: Yes (Hospitalization)
  Sender: FDA-Public Use
  Company Number: US-2005-028234

PATIENT
  Age: 49 Year
  Sex: Male
  Weight: 96 kg

DRUGS (12)
  1. BETASERON [Suspect]
     Indication: RELAPSING-REMITTING MULTIPLE SCLEROSIS
     Dosage: SEE IMAGE
     Route: 058
     Dates: start: 20040630, end: 20051009
  2. BETASERON [Suspect]
     Indication: RELAPSING-REMITTING MULTIPLE SCLEROSIS
     Dosage: SEE IMAGE
     Route: 058
     Dates: start: 20051208
  3. OXYCODONE (OXYCODONE) [Concomitant]
  4. TOPAMAX [Concomitant]
  5. REPLAX (ELETRIPTAN HYDROBROMIDE) [Concomitant]
  6. NEURONTIN [Concomitant]
  7. LEXAPRO (ESCITABLOPRAM OXALATE) [Concomitant]
  8. MORPHINE SULFATE [Concomitant]
  9. EXTRA STRENGTH TYLENOL [Concomitant]
  10. QUININE SULFATE [Concomitant]
  11. LEVITRA [Concomitant]
  12. IBUPROFEN [Concomitant]

REACTIONS (8)
  - CHOLECYSTITIS ACUTE [None]
  - EPSTEIN-BARR VIRUS INFECTION [None]
  - GALLBLADDER ENLARGEMENT [None]
  - HEPATITIS ACUTE [None]
  - HEPATITIS C [None]
  - HEPATOMEGALY [None]
  - MONONUCLEOSIS HETEROPHILE TEST POSITIVE [None]
  - SPLENOMEGALY [None]
